FAERS Safety Report 4360434-0 (Version None)
Quarter: 2004Q2

REPORT INFORMATION
  Report Type: 
  Country: None (occurrence: None)
  Receive Date: 20040514
  Receipt Date: 20040430
  Transmission Date: 20050107
  Serious: Yes (Hospitalization)
  Sender: FDA-Public Use
  Company Number: 02100-JPN-04-0111

PATIENT
  Age: 70 Year
  Sex: Male

DRUGS (5)
  1. CILOSTAZOL [Suspect]
     Dosage: 200 MG, ORAL
     Route: 048
     Dates: start: 20040407, end: 20040410
  2. TICLOPIDINE HYDROCHLORIDE [Suspect]
     Dosage: 200 MG, ORAL
     Route: 048
     Dates: start: 20040401, end: 20040407
  3. ASPIRIN [Concomitant]
  4. FUROSEMIDE [Concomitant]
  5. METILDIGOXINE [Concomitant]

REACTIONS (5)
  - ALANINE AMINOTRANSFERASE INCREASED [None]
  - ASPARTATE AMINOTRANSFERASE INCREASED [None]
  - JAUNDICE [None]
  - LIVER DISORDER [None]
  - PYREXIA [None]
